FAERS Safety Report 11621195 (Version 1)
Quarter: 2015Q4

REPORT INFORMATION
  Report Type: Spontaneous
  Country: US (occurrence: US)
  Receive Date: 20151012
  Receipt Date: 20151012
  Transmission Date: 20160304
  Serious: No
  Sender: FDA-Public Use
  Company Number: US-GLAXOSMITHKLINE-US2015GSK139452

PATIENT
  Sex: Female

DRUGS (1)
  1. TANZEUM [Suspect]
     Active Substance: ALBIGLUTIDE
     Indication: TYPE 2 DIABETES MELLITUS
     Dosage: 30 MG, U
     Route: 042
     Dates: start: 20150928

REACTIONS (8)
  - Head discomfort [Unknown]
  - Back pain [Unknown]
  - Nausea [Unknown]
  - Pyrexia [Unknown]
  - Adverse reaction [Unknown]
  - Asthenia [Unknown]
  - Paraesthesia [Unknown]
  - Hypoaesthesia [Unknown]
